FAERS Safety Report 5582953-1 (Version None)
Quarter: 2007Q4

REPORT INFORMATION
  Report Type: 
  Country: None (occurrence: None)
  Receive Date: 20071231
  Receipt Date: 20071218
  Transmission Date: 20080405
  Serious: Yes (Life-Threatening, Hospitalization)
  Sender: FDA-Public Use
  Company Number: 02100-JPN-04-0283

PATIENT
  Age: 71 Year
  Sex: Male

DRUGS (6)
  1. CILOSTAZOL [Suspect]
     Indication: CEREBRAL INFARCTION
     Dosage: 100 MG ORAL
     Route: 048
     Dates: start: 20040317, end: 20040403
  2. CILOSTAZOL [Suspect]
     Indication: CEREBRAL INFARCTION
     Dosage: 100 MG ORAL
     Route: 048
     Dates: start: 20040408, end: 20040625
  3. DILTIAZEM HCL [Concomitant]
  4. ASPIRIN [Concomitant]
  5. FUROSEMIDE [Concomitant]
  6. SPIRONOLACTONE [Concomitant]

REACTIONS (2)
  - GASTRIC CANCER [None]
  - RASH [None]
